FAERS Safety Report 9665012 (Version 2)
Quarter: 2013Q4

REPORT INFORMATION
  Report Type: Spontaneous
  Country: US (occurrence: US)
  Receive Date: 20131101
  Receipt Date: 20131101
  Transmission Date: 20140711
  Serious: Yes (Hospitalization, Other)
  Sender: FDA-Public Use
  Company Number: US-GILEAD-2013-0085795

PATIENT
  Sex: Male

DRUGS (2)
  1. LETAIRIS [Suspect]
     Indication: PULMONARY HYPERTENSION
     Dosage: 5 MG, QD
     Route: 048
     Dates: start: 20130516
  2. LETAIRIS [Suspect]
     Indication: HEART DISEASE CONGENITAL
     Dosage: 5 MG, UNK
     Dates: start: 20121113

REACTIONS (1)
  - Pneumonia [Unknown]
